FAERS Safety Report 9400704 (Version 1)
Quarter: 2013Q3

REPORT INFORMATION
  Report Type: Spontaneous
  Country: US (occurrence: None)
  Receive Date: 20130712
  Receipt Date: 20130712
  Transmission Date: 20140515
  Serious: No
  Sender: FDA-Public Use
  Company Number: None

PATIENT
  Age: 62 Year
  Sex: Male
  Weight: 77.11 kg

DRUGS (5)
  1. SUMATRIPTAN [Suspect]
     Indication: MIGRAINE
     Dosage: ONE TABLET P.R.N MIGRAINE BY MOUTH
     Route: 048
     Dates: start: 201305, end: 201307
  2. DOXEPIN [Concomitant]
  3. SIMVASTATIN [Concomitant]
  4. VITAMIN D [Concomitant]
  5. NAPROXEN [Concomitant]

REACTIONS (4)
  - Product taste abnormal [None]
  - No therapeutic response [None]
  - Product quality issue [None]
  - Incorrect dose administered [None]
